FAERS Safety Report 22819104 (Version 2)
Quarter: 2024Q2

REPORT INFORMATION
  Report Type: Spontaneous
  Country: US (occurrence: US)
  Receive Date: 20230814
  Receipt Date: 20240410
  Transmission Date: 20240716
  Serious: No
  Sender: FDA-Public Use
  Company Number: US-BRISTOL-MYERS SQUIBB COMPANY-2023-113277

PATIENT
  Age: 69 Year
  Sex: Male
  Weight: 142.88 kg

DRUGS (1)
  1. POMALYST [Suspect]
     Active Substance: POMALIDOMIDE
     Indication: Amyloidosis
     Route: 048

REACTIONS (3)
  - Chest pain [Unknown]
  - Off label use [Unknown]
  - Skin exfoliation [Unknown]
